FAERS Safety Report 24561408 (Version 1)
Quarter: 2024Q4

REPORT INFORMATION
  Report Type: Spontaneous
  Country: US (occurrence: None)
  Receive Date: 20241029
  Receipt Date: 20241029
  Transmission Date: 20250114
  Serious: Yes (Hospitalization)
  Sender: Public
  Company Number: None

PATIENT
  Sex: Female

DRUGS (1)
  1. BOSULIF [Suspect]
     Active Substance: BOSUTINIB MONOHYDRATE
     Indication: Iron deficiency anaemia
     Dosage: FREQUENCY : DAILY;?
     Route: 048
     Dates: start: 202201

REACTIONS (1)
  - Cardiac failure congestive [None]
